FAERS Safety Report 10173050 (Version 1)
Quarter: 2014Q2

REPORT INFORMATION
  Report Type: Spontaneous
  Country: US (occurrence: None)
  Receive Date: 20140514
  Receipt Date: 20140514
  Transmission Date: 20141212
  Serious: No
  Sender: FDA-Public Use
  Company Number: None

PATIENT
  Age: 19 Year
  Sex: Male

DRUGS (1)
  1. BACTRIM GENERIC 800/160 AMNEAL [Suspect]
     Dosage: 800/160MG?2BID?ORAL
     Route: 048
     Dates: start: 20140423, end: 20140502

REACTIONS (1)
  - Anaphylactic reaction [None]
